FAERS Safety Report 14388746 (Version 1)
Quarter: 2018Q1

REPORT INFORMATION
  Report Type: Spontaneous
  Country: US (occurrence: US)
  Receive Date: 20180115
  Receipt Date: 20180115
  Transmission Date: 20180509
  Serious: Yes (Other)
  Sender: FDA-Public Use
  Company Number: US-SA-2017SA223581

PATIENT

DRUGS (2)
  1. TAXOTERE [Suspect]
     Active Substance: DOCETAXEL
     Route: 051
     Dates: start: 20150310, end: 20150310
  2. TAXOTERE [Suspect]
     Active Substance: DOCETAXEL
     Route: 051
     Dates: start: 20150806, end: 20150806

REACTIONS (1)
  - Alopecia [Not Recovered/Not Resolved]
